FAERS Safety Report 16650978 (Version 2)
Quarter: 2019Q3

REPORT INFORMATION
  Report Type: Spontaneous
  Country: DE (occurrence: DE)
  Receive Date: 20190731
  Receipt Date: 20190823
  Transmission Date: 20191004
  Serious: Yes (Hospitalization, Other)
  Sender: FDA-Public Use
  Company Number: DE-DRREDDYS-GER/GER/19/0112355

PATIENT
  Age: 60 Year
  Sex: Female
  Weight: 50 kg

DRUGS (4)
  1. PANTOPRAZOLE [Concomitant]
     Active Substance: PANTOPRAZOLE
     Indication: PRODUCT USED FOR UNKNOWN INDICATION
     Dosage: 40 MG, 1-0-0-0, TABLETTEN
     Route: 048
  2. FERRO SANOL 100MG [Concomitant]
     Indication: PRODUCT USED FOR UNKNOWN INDICATION
     Dosage: 100 MG, 1-0-0-0, TABLETTEN
     Route: 048
  3. IBUPROFEN. [Suspect]
     Active Substance: IBUPROFEN
     Indication: PRODUCT USED FOR UNKNOWN INDICATION
     Dosage: 600 MG, BEI BEDARF 1X/TAG, TABLETTEN?600 MG, IF REQUIRED 1X/DAY, TABLETS
     Route: 048
  4. NEURALGIN SCHMERZTABLETTEN 250MG/200MG/50MG [Suspect]
     Active Substance: ACETAMINOPHEN\ASPIRIN\CAFFEINE
     Indication: PRODUCT USED FOR UNKNOWN INDICATION
     Dosage: 250|200|50 MG, BEI BEDARF, MAX. 10/TAG, TABLETTEN?250|200|50 MG, IF REQUIRED, MAX. 10/DAY, TABLETS
     Route: 048

REACTIONS (4)
  - Haematochezia [Unknown]
  - Abdominal pain upper [Unknown]
  - Product administration error [Unknown]
  - Anaemia [Unknown]
